FAERS Safety Report 5620737-6 (Version None)
Quarter: 2008Q1

REPORT INFORMATION
  Report Type: 
  Country: None (occurrence: None)
  Receive Date: 20080208
  Receipt Date: 20080201
  Transmission Date: 20080703
  Serious: Yes (Hospitalization)
  Sender: FDA-Public Use
  Company Number: DE-ABBOTT-08P-062-0436241-00

PATIENT
  Sex: Male

DRUGS (9)
  1. HUMIRA [Suspect]
     Indication: ANKYLOSING SPONDYLITIS
     Route: 058
     Dates: start: 20060601
  2. HUMIRA [Suspect]
     Route: 058
  3. METHOTREXATE [Concomitant]
     Indication: ANKYLOSING SPONDYLITIS
     Route: 058
     Dates: start: 20030101
  4. CORTISONE [Concomitant]
     Indication: ANKYLOSING SPONDYLITIS
  5. PREDNISOLONE [Concomitant]
     Indication: ANKYLOSING SPONDYLITIS
     Route: 048
  6. RISEDRONAT [Concomitant]
     Indication: OSTEOPOROSIS
  7. CALCIUM WITH CHOLECALCIFEROL [Concomitant]
     Indication: OSTEOPOROSIS
  8. PANTOPRAZOLE [Concomitant]
     Indication: GASTRIC DISORDER
  9. SULFASALAZINE [Concomitant]
     Indication: ABDOMINAL DISCOMFORT

REACTIONS (2)
  - CARDIAC DISORDER [None]
  - GASTROINTESTINAL DISORDER [None]
